FAERS Safety Report 9061585 (Version 3)
Quarter: 2013Q1

REPORT INFORMATION
  Report Type: Spontaneous
  Country: US (occurrence: None)
  Receive Date: 20120910
  Receipt Date: 20130226
  Transmission Date: 20140127
  Serious: Yes (Hospitalization, Disabling, Other)
  Sender: FDA-Public Use
  Company Number: ACO_31571_2012

PATIENT
  Age: 65 Year
  Sex: Male
  Weight: 69.8 kg

DRUGS (8)
  1. AMPYRA (DALFAMPRIDINE) TABLET, 10MG [Suspect]
     Indication: GAIT DISTURBANCE
     Dates: start: 201004, end: 20120807
  2. INTERFERON [Concomitant]
  3. BABY ASPIRIN (ACETYLSALICYLIC ACID) [Concomitant]
  4. BENICAR (OLMESARTAN MEDOXOMIL) [Concomitant]
  5. ROPINIROLE (ROPINIROLE HYDROCHLORIDE) [Concomitant]
  6. CRANBERRY (CRANBERRY) [Concomitant]
  7. REBIF (INTERFERON BETA-1A) [Suspect]
     Route: 058
  8. AMANTADINE [Suspect]

REACTIONS (14)
  - Grand mal convulsion [None]
  - Unresponsive to stimuli [None]
  - Sensory disturbance [None]
  - Road traffic accident [None]
  - Sleep apnoea syndrome [None]
  - Asthenia [None]
  - Loss of consciousness [None]
  - Mobility decreased [None]
  - Speech disorder [None]
  - Tremor [None]
  - Muscular weakness [None]
  - Malaise [None]
  - Confusional state [None]
  - Mental impairment [None]
